FAERS Safety Report 9285941 (Version 3)
Quarter: 2013Q3

REPORT INFORMATION
  Report Type: Spontaneous
  Country: US (occurrence: US)
  Receive Date: 20130513
  Receipt Date: 20130812
  Transmission Date: 20140515
  Serious: Yes (Hospitalization, Other)
  Sender: FDA-Public Use
  Company Number: US-ROCHE-709497

PATIENT
  Age: 26 Year
  Sex: Female
  Weight: 55.8 kg

DRUGS (5)
  1. ACCUTANE [Suspect]
     Indication: ACNE CYSTIC
     Dosage: 40MG/80MG PULSE
     Route: 065
     Dates: start: 20010409, end: 20010726
  2. ACCUTANE [Suspect]
     Route: 065
     Dates: start: 20010730, end: 20011024
  3. TAC [Concomitant]
     Indication: ACNE CYSTIC
     Dosage: 3 MG/CC, 0.06CC
     Route: 026
  4. TAC [Concomitant]
     Indication: ECZEMA
     Route: 061
  5. ESTRATEST [Concomitant]

REACTIONS (21)
  - Crohn^s disease [Unknown]
  - Small intestinal obstruction [Unknown]
  - Inflammatory bowel disease [Unknown]
  - Depression [Unknown]
  - Rectal haemorrhage [Unknown]
  - Large intestine polyp [Unknown]
  - Lip dry [Unknown]
  - Dry skin [Unknown]
  - Blood cholesterol increased [Unknown]
  - Blood triglycerides increased [Unknown]
  - Eczema [Unknown]
  - Acne [Unknown]
  - Abdominal pain [Unknown]
  - Ocular hyperaemia [Unknown]
  - Mood altered [Unknown]
  - Musculoskeletal stiffness [Unknown]
  - Altered visual depth perception [Unknown]
  - Nasal dryness [Unknown]
  - Epistaxis [Unknown]
  - Migraine [Recovered/Resolved]
  - Melanocytic naevus [Unknown]
